FAERS Safety Report 10065210 (Version 2)
Quarter: 2014Q2

REPORT INFORMATION
  Report Type: Spontaneous
  Country: US (occurrence: US)
  Receive Date: 20140408
  Receipt Date: 20140501
  Transmission Date: 20141212
  Serious: No
  Sender: FDA-Public Use
  Company Number: US-009507513-1404USA004315

PATIENT
  Age: 84 Year
  Sex: Male

DRUGS (1)
  1. NASONEX [Suspect]
     Dosage: 1 SPRAY INTO EACH NOSTRIL TWICE DAILY, PRN
     Route: 045
     Dates: start: 201311

REACTIONS (4)
  - Accidental exposure to product [Unknown]
  - Product quality issue [Unknown]
  - Drug dose omission [Unknown]
  - No adverse event [Unknown]
